FAERS Safety Report 6439441-X (Version None)
Quarter: 2009Q4

REPORT INFORMATION
  Report Type: 
  Country: None (occurrence: None)
  Receive Date: 20091113
  Receipt Date: 20090930
  Transmission Date: 20100525
  Serious: No
  Sender: FDA-Public Use
  Company Number: US-BAYER-200935841NA

PATIENT
  Age: 67 Year
  Sex: Male
  Weight: 109 kg

DRUGS (5)
  1. MAGNEVIST [Suspect]
     Indication: NUCLEAR MAGNETIC RESONANCE IMAGING
     Dosage: TOTAL DAILY DOSE: 20 ML  UNIT DOSE: 20 ML
     Route: 042
     Dates: start: 20090930, end: 20090930
  2. ATENOLOL [Concomitant]
  3. ASPIRIN [Concomitant]
  4. FISH OIL [Concomitant]
  5. GLAUCOMA MEDS [Concomitant]

REACTIONS (1)
  - URTICARIA [None]
